FAERS Safety Report 8154731-0 (Version None)
Quarter: 2012Q1

REPORT INFORMATION
  Report Type: 
  Country: None (occurrence: None)
  Receive Date: 20120221
  Receipt Date: 20120208
  Transmission Date: 20120608
  Serious: Yes (Hospitalization, Other)
  Sender: FDA-Public Use
  Company Number: PHHY2012FR004762

PATIENT
  Sex: Male
  Weight: 78 kg

DRUGS (8)
  1. GLICLAZIDE [Concomitant]
     Indication: DIABETES MELLITUS
     Dosage: UNK
     Dates: start: 19970101
  2. GLEEVEC [Suspect]
     Dosage: 200 MG, BID
  3. ESIDRIX [Concomitant]
     Indication: HYPERTENSION
     Dosage: UNK
     Dates: start: 20110317
  4. ASPIRIN [Concomitant]
     Dosage: 75 MG, QD
     Dates: start: 19970101
  5. METFORMIN HCL [Concomitant]
     Indication: DIABETES MELLITUS
     Dosage: 500 MG, TID
  6. GLEEVEC [Suspect]
     Indication: MYELOID LEUKAEMIA
     Dosage: 400 MG, DAILY
     Dates: start: 20020101
  7. AZOR [Concomitant]
     Indication: HYPERTENSION
     Dosage: 40 MG/10 MG, UNK
     Dates: start: 20090625
  8. ZOCOR [Concomitant]
     Dosage: 20 MG, QD
     Dates: start: 19970101

REACTIONS (6)
  - PERIPHERAL ARTERIAL OCCLUSIVE DISEASE [None]
  - VOMITING [None]
  - VIBRATORY SENSE INCREASED [None]
  - EXTREMITY NECROSIS [None]
  - ARTERIAL THROMBOSIS LIMB [None]
  - HYPOAESTHESIA [None]
